FAERS Safety Report 10261054 (Version 1)
Quarter: 2014Q2

REPORT INFORMATION
  Report Type: Other
  Country: US (occurrence: US)
  Receive Date: 20140626
  Receipt Date: 20140626
  Transmission Date: 20141212
  Serious: Yes (Hospitalization)
  Sender: FDA-Public Use
  Company Number: US-SHIRE-US201403262

PATIENT
  Age: 68 Year
  Sex: Female

DRUGS (1)
  1. CINRYZE [Suspect]
     Indication: PRODUCT USED FOR UNKNOWN INDICATION
     Dosage: UNK (1000 UNITS), OTHER (EVERY 4 DAYS)
     Route: 042
     Dates: start: 20130708

REACTIONS (1)
  - Lymphoedema [Unknown]
